FAERS Safety Report 9043972 (Version 1)
Quarter: 2013Q1

REPORT INFORMATION
  Report Type: Report from Study
  Country: US (occurrence: US)
  Receive Date: 20130130
  Receipt Date: 20130130
  Transmission Date: 20140127
  Serious: No
  Sender: FDA-Public Use
  Company Number: US-ABBOTT-12P-163-0946557-00

PATIENT
  Age: 28 Year
  Sex: Female

DRUGS (5)
  1. HUMIRA 40 MG/0.8 ML PEN [Suspect]
     Indication: COLITIS ULCERATIVE
     Route: 058
     Dates: start: 201112
  2. ASACOL [Concomitant]
     Indication: PRODUCT USED FOR UNKNOWN INDICATION
  3. IRON [Concomitant]
     Indication: PRODUCT USED FOR UNKNOWN INDICATION
  4. DEPO PROVERA [Concomitant]
     Indication: CONTRACEPTION
     Dosage: 3 MONTH SHOT
     Route: 050
     Dates: end: 20120607
  5. PROVERA [Concomitant]
     Indication: CONTRACEPTION
     Route: 048
     Dates: start: 20120607

REACTIONS (1)
  - Injection site pain [Recovered/Resolved]
